FAERS Safety Report 5725895-0 (Version None)
Quarter: 2008Q2

REPORT INFORMATION
  Report Type: 
  Country: None (occurrence: None)
  Receive Date: 20080501
  Receipt Date: 20080501
  Transmission Date: 20081010
  Serious: Yes (Other)
  Sender: FDA-Public Use
  Company Number: None

PATIENT
  Age: 25 Year
  Sex: Female
  Weight: 86.1834 kg

DRUGS (1)
  1. TUBERSOL [Suspect]
     Indication: TUBERCULIN TEST
     Dosage: .01 ML
     Dates: start: 20080428, end: 20080428

REACTIONS (4)
  - BURNING SENSATION [None]
  - DYSPHONIA [None]
  - LUNG DISORDER [None]
  - VOMITING [None]
